FAERS Safety Report 25659531 (Version 1)
Quarter: 2025Q3

REPORT INFORMATION
  Report Type: Spontaneous
  Country: CN (occurrence: CN)
  Receive Date: 20250808
  Receipt Date: 20250808
  Transmission Date: 20251021
  Serious: Yes (Hospitalization, Other)
  Sender: MERCK SHARP & DOHME LLC
  Company Number: CN-009507513-2315599

PATIENT
  Age: 58 Year
  Sex: Male
  Weight: 62.8 kg

DRUGS (9)
  1. PEMBROLIZUMAB [Suspect]
     Active Substance: PEMBROLIZUMAB
     Indication: Tongue neoplasm malignant stage unspecified
     Dosage: 200 MG, Q3W
     Route: 042
     Dates: start: 20241231, end: 20241231
  2. PEMBROLIZUMAB [Suspect]
     Active Substance: PEMBROLIZUMAB
     Indication: Tongue neoplasm malignant stage unspecified
     Dosage: 200 MG, Q3W
     Route: 042
     Dates: start: 20250122, end: 20250122
  3. PEMBROLIZUMAB [Suspect]
     Active Substance: PEMBROLIZUMAB
     Indication: Tongue neoplasm malignant stage unspecified
     Dosage: 200 MG, Q3W
     Route: 042
     Dates: start: 20250304, end: 20250304
  4. PEMBROLIZUMAB [Suspect]
     Active Substance: PEMBROLIZUMAB
     Indication: Tongue neoplasm malignant stage unspecified
     Dosage: 200 MG, Q3W
     Route: 042
     Dates: start: 20250331, end: 20250331
  5. PEMBROLIZUMAB [Suspect]
     Active Substance: PEMBROLIZUMAB
     Indication: Tongue neoplasm malignant stage unspecified
     Dosage: 200 MG, Q3W
     Route: 042
     Dates: start: 20250529, end: 20250529
  6. PEMBROLIZUMAB [Suspect]
     Active Substance: PEMBROLIZUMAB
     Indication: Tongue neoplasm malignant stage unspecified
     Dosage: 200 MG, Q3W
     Route: 042
     Dates: start: 20250619, end: 20250619
  7. CETUXIMAB [Suspect]
     Active Substance: CETUXIMAB
     Indication: Tongue neoplasm malignant stage unspecified
     Dosage: 500 MG, QW
     Route: 042
     Dates: start: 20250619, end: 20250703
  8. PACLITAXEL [Suspect]
     Active Substance: PACLITAXEL
     Indication: Tongue neoplasm malignant stage unspecified
  9. CISPLATIN [Suspect]
     Active Substance: CISPLATIN
     Indication: Tongue neoplasm malignant stage unspecified

REACTIONS (6)
  - Immune-mediated myocarditis [Unknown]
  - Inappropriate schedule of product administration [Unknown]
  - Inappropriate schedule of product administration [Unknown]
  - Inappropriate schedule of product administration [Unknown]
  - Product use issue [Unknown]
  - Cardiac failure [Unknown]

NARRATIVE: CASE EVENT DATE: 20241231
